FAERS Safety Report 18198884 (Version 2)
Quarter: 2020Q3

REPORT INFORMATION
  Report Type: Spontaneous
  Country: US (occurrence: US)
  Receive Date: 20200826
  Receipt Date: 20200831
  Transmission Date: 20201103
  Serious: Yes (Death, Life-Threatening, Hospitalization)
  Sender: FDA-Public Use
  Company Number: US-TEVA-2020-US-1818241

PATIENT
  Age: 43 Year
  Sex: Male

DRUGS (7)
  1. VENLAFAXINE [Concomitant]
     Active Substance: VENLAFAXINE HYDROCHLORIDE
     Indication: MAJOR DEPRESSION
     Dosage: 1 DOSAGE FORMS DAILY;
     Route: 065
  2. FOLIC ACID. [Concomitant]
     Active Substance: FOLIC ACID
     Indication: PRODUCT USED FOR UNKNOWN INDICATION
     Route: 048
  3. MULTIVITAMIN/IRON [Concomitant]
     Indication: PRODUCT USED FOR UNKNOWN INDICATION
     Dosage: 1 DOSAGE FORMS DAILY;
     Route: 048
  4. EPINEPHRINE. [Suspect]
     Active Substance: EPINEPHRINE
     Indication: VASOPRESSIVE THERAPY
     Dosage: TOTAL DOSE: 5 MG
     Route: 065
  5. PREDNISONE. [Interacting]
     Active Substance: PREDNISONE
     Indication: ALCOHOL WITHDRAWAL SYNDROME
     Dosage: 3 DOSAGE FORMS DAILY; PRESCRIBED AS: 3 TABLETS EVERY MORNING FOR 28 DAYS, THEN TAPER OFF
     Route: 048
  6. CLONIDINE. [Suspect]
     Active Substance: CLONIDINE
     Indication: ALCOHOL WITHDRAWAL SYNDROME
     Dosage: .1 MILLIGRAM DAILY; PRESCRIBED TWO PATCHES, ONE WAS SUPPOSED TO BE REMOVED IN 3 DAYS AND OTHER ON TH
     Route: 061
  7. GABAPENTIN. [Interacting]
     Active Substance: GABAPENTIN
     Indication: ALCOHOL WITHDRAWAL SYNDROME
     Dosage: PRESCRIBED AS: ONE CAPSULE 3 TIMES A DAY, THEN ONE CAPSULE TWICE A DAY FOLLOWED BY TWO CAPSULES D...
     Route: 048

REACTIONS (5)
  - Drug ineffective [Unknown]
  - Drug interaction [Fatal]
  - Cardiac arrest [Fatal]
  - Off label use [Unknown]
  - Suicidal ideation [Fatal]
